FAERS Safety Report 5749081-3 (Version None)
Quarter: 2008Q2

REPORT INFORMATION
  Report Type: 
  Country: None (occurrence: None)
  Receive Date: 20080527
  Receipt Date: 20080522
  Transmission Date: 20081010
  Serious: Yes (Hospitalization)
  Sender: FDA-Public Use
  Company Number: DE-BRISTOL-MYERS SQUIBB COMPANY-14201107

PATIENT
  Age: 51 Year
  Sex: Male
  Weight: 74 kg

DRUGS (9)
  1. CARBOPLATIN [Suspect]
     Indication: NON-SMALL CELL LUNG CANCER
     Dosage: INTIAL DOSE WAS GIVEN ON 08-APR-2008, 799 MG.
     Route: 065
     Dates: start: 20080429, end: 20080429
  2. ALIMTA [Suspect]
     Indication: NON-SMALL CELL LUNG CANCER
     Dosage: INTIAL DOSE WAS GIVEN ON 08-APR-2008, 957.98 MG.
     Route: 065
     Dates: start: 20080429, end: 20080429
  3. VITAMIN B-12 [Concomitant]
     Dates: start: 20080402
  4. FOLSAURE [Concomitant]
     Dates: start: 20080402
  5. VALORON [Concomitant]
  6. ONDANSETRON [Concomitant]
     Dates: start: 20080408
  7. METOCLOPRAMIDE [Concomitant]
     Dates: start: 20080408
  8. ZOPLICONE [Concomitant]
     Dates: start: 20080407
  9. FAKTU [Concomitant]
     Dates: start: 20080421

REACTIONS (6)
  - ABDOMINAL PAIN [None]
  - DEHYDRATION [None]
  - FLATULENCE [None]
  - NAUSEA [None]
  - PYREXIA [None]
  - VOMITING [None]
